FAERS Safety Report 6152173-0 (Version None)
Quarter: 2009Q2

REPORT INFORMATION
  Report Type: 
  Country: None (occurrence: None)
  Receive Date: 20090410
  Receipt Date: 20090406
  Transmission Date: 20091009
  Serious: Yes (Other)
  Sender: FDA-Public Use
  Company Number: US-GILEAD-2009-0021162

PATIENT
  Sex: Female
  Weight: 91.708 kg

DRUGS (5)
  1. LETAIRIS [Suspect]
     Indication: PULMONARY ARTERIAL HYPERTENSION
     Route: 048
     Dates: start: 20081211, end: 20090323
  2. PREDNISONE TAB [Suspect]
  3. CALCIUM + VITAMIN D [Suspect]
  4. ATIVAN [Suspect]
  5. PAXIL [Suspect]

REACTIONS (2)
  - ALOPECIA [None]
  - LIVER FUNCTION TEST ABNORMAL [None]
